FAERS Safety Report 4801819-5 (Version None)
Quarter: 2005Q4

REPORT INFORMATION
  Report Type: 
  Country: None (occurrence: None)
  Receive Date: 20051014
  Receipt Date: 20051014
  Transmission Date: 20060501
  Serious: Yes (Life-Threatening, Hospitalization, Disabling, Other)
  Sender: FDA-Public Use
  Company Number: None

PATIENT
  Age: 50 Year
  Sex: Female
  Weight: 72.5755 kg

DRUGS (1)
  1. ZOLOFT [Suspect]
     Indication: DEPRESSION
     Dosage: 200MG 1XDAY PO
     Route: 048

REACTIONS (31)
  - BALANCE DISORDER [None]
  - BEDRIDDEN [None]
  - DEPRESSION [None]
  - DISTURBANCE IN ATTENTION [None]
  - DIZZINESS [None]
  - DRUG TOXICITY [None]
  - DRUG WITHDRAWAL SYNDROME [None]
  - ECONOMIC PROBLEM [None]
  - EMOTIONAL DISTRESS [None]
  - EYE PAIN [None]
  - EYE SWELLING [None]
  - FEAR [None]
  - FEELING ABNORMAL [None]
  - HYPERHIDROSIS [None]
  - HYPERVENTILATION [None]
  - MALAISE [None]
  - NAUSEA [None]
  - NIGHTMARE [None]
  - PANCREATITIS [None]
  - PANIC ATTACK [None]
  - PHOTOSENSITIVITY REACTION [None]
  - PSYCHIATRIC SYMPTOM [None]
  - RENAL PAIN [None]
  - SCIATICA [None]
  - SELF MUTILATION [None]
  - SUICIDAL IDEATION [None]
  - SUICIDE ATTEMPT [None]
  - TINNITUS [None]
  - TREATMENT NONCOMPLIANCE [None]
  - TREMOR [None]
  - WEIGHT INCREASED [None]
